FAERS Safety Report 7021537-5 (Version None)
Quarter: 2010Q3

REPORT INFORMATION
  Report Type: 
  Country: None (occurrence: None)
  Receive Date: 20100928
  Receipt Date: 20100913
  Transmission Date: 20110219
  Serious: Yes (Hospitalization)
  Sender: FDA-Public Use
  Company Number: AMAG201000342

PATIENT
  Age: 57 Year
  Sex: Female
  Weight: 58 kg

DRUGS (15)
  1. FERAHEME [Suspect]
     Indication: IRON DEFICIENCY ANAEMIA
     Dosage: 510 MG, SINGLE, INTRAVENOUS
     Route: 042
     Dates: start: 20100823, end: 20100823
  2. ATENOLOL [Concomitant]
  3. VITAMIN D [Concomitant]
  4. HYDROCHLOROTHIAZIDE [Concomitant]
  5. THERAGRAN (VITAMINS NOS) TABLET [Concomitant]
  6. SODIUM BICARBOANTE (SODIUM BICARBOANTE) TABLET [Concomitant]
  7. NICOTINE (NICOTINE) PATCH [Concomitant]
  8. NICOTINE POLACRILEX (NICOTINE POLACRILEX) [Concomitant]
  9. ZEMPLAR [Concomitant]
  10. HEPARIN [Concomitant]
  11. EPOGEN [Concomitant]
  12. DULCOLAX (BISACODYL) TABLET [Concomitant]
  13. HEPARIN (HEPARIN SODIUM) INJECTION [Concomitant]
  14. NEURONTIN [Concomitant]
  15. NORVASC [Concomitant]

REACTIONS (6)
  - ACUTE GENERALISED EXANTHEMATOUS PUSTULOSIS [None]
  - LEUKOCYTOSIS [None]
  - PAIN [None]
  - RASH GENERALISED [None]
  - TYPE IV HYPERSENSITIVITY REACTION [None]
  - URTICARIA [None]
